FAERS Safety Report 10250401 (Version 1)
Quarter: 2014Q2

REPORT INFORMATION
  Report Type: Spontaneous
  Country: CA (occurrence: CA)
  Receive Date: 20140620
  Receipt Date: 20140620
  Transmission Date: 20141212
  Serious: Yes (Hospitalization)
  Sender: FDA-Public Use
  Company Number: PHHY2014CA073357

PATIENT
  Age: 64 Year
  Sex: Female
  Weight: 69 kg

DRUGS (34)
  1. BACLOFEN [Suspect]
  2. NORTRIPTYLINE [Suspect]
  3. TIZANIDINE [Suspect]
  4. ASCORBIC ACID [Suspect]
  5. ALENDRONATE [Suspect]
  6. FUROSEMIDE [Suspect]
  7. HYDROMORPHONE [Suspect]
  8. CALCIUM [Suspect]
  9. ZOPICLONE [Suspect]
  10. VITAMIN B12 [Suspect]
  11. SENNOSIDE A+B [Suspect]
  12. ACIDOPHILUS [Suspect]
  13. APO-K [Suspect]
     Dosage: 600 MG, UNK
  14. APO-SULFATRIM [Suspect]
  15. ATIVAN [Suspect]
  16. B-100 COMPLEX [Suspect]
  17. WARFARIN [Suspect]
  18. PREDNISONE [Suspect]
  19. LORATADINE [Suspect]
  20. MELATONIN [Suspect]
  21. CELLCEPT [Suspect]
  22. CYMBALTA [Suspect]
     Route: 048
  23. DOCUSATE SODIUM [Suspect]
  24. ELECTROLYTES [Suspect]
  25. FISH OIL [Suspect]
  26. IMMUNOGLOBULIN HUMAN [Suspect]
     Route: 042
  27. IMODIUM [Suspect]
  28. LYRICA [Suspect]
  29. MULTIVITAMINAS [Suspect]
  30. NASONEX [Suspect]
  31. NOVO-HYDRAZIDE [Suspect]
  32. SENOKOT [Suspect]
  33. VITAMIN D [Suspect]
  34. ZANTAC [Suspect]

REACTIONS (4)
  - Coma [Recovered/Resolved]
  - Gastrooesophageal reflux disease [Recovered/Resolved]
  - Pneumonia aspiration [Recovered/Resolved]
  - Somnolence [Recovered/Resolved]
